FAERS Safety Report 22112117 (Version 1)
Quarter: 2023Q1

REPORT INFORMATION
  Report Type: Spontaneous
  Country: US (occurrence: US)
  Receive Date: 20230318
  Receipt Date: 20230318
  Transmission Date: 20230417
  Serious: Yes (Death, Life-Threatening, Hospitalization, Other)
  Sender: FDA-Public Use
  Company Number: US-UNITED THERAPEUTICS-UNT-2023-007318

PATIENT
  Age: 44 Year
  Sex: Female

DRUGS (2)
  1. REMODULIN [Suspect]
     Active Substance: TREPROSTINIL
     Indication: Pulmonary arterial hypertension
     Dosage: UNK, CONTINUING
     Route: 041
  2. NITRIC OXIDE [Concomitant]
     Active Substance: NITRIC OXIDE
     Indication: Product used for unknown indication
     Dosage: UNK

REACTIONS (9)
  - Death [Fatal]
  - Hypoxia [Not Recovered/Not Resolved]
  - Right ventricular failure [Unknown]
  - Pulmonary oedema [Not Recovered/Not Resolved]
  - Epistaxis [Unknown]
  - Hypotension [Unknown]
  - Tachypnoea [Not Recovered/Not Resolved]
  - Aneurysm [Unknown]
  - Diastolic dysfunction [Unknown]
